FAERS Safety Report 4667502-4 (Version None)
Quarter: 2005Q2

REPORT INFORMATION
  Report Type: 
  Country: None (occurrence: None)
  Receive Date: 20050520
  Receipt Date: 20041105
  Transmission Date: 20051028
  Serious: Yes (Hospitalization, Other)
  Sender: FDA-Public Use
  Company Number: PHEH2004US11978

PATIENT
  Age: 50 Year
  Sex: Female
  Weight: 44 kg

DRUGS (8)
  1. FASLODEX [Concomitant]
     Dosage: 250 MG, UNK
  2. PROCHLORPERAZINE [Suspect]
     Dosage: 10 MG, UNK
  3. ZOMETA [Suspect]
     Indication: BREAST CANCER METASTATIC
     Dosage: 4 MG, UNK
     Route: 042
     Dates: start: 20021209, end: 20040527
  4. TAXOL [Concomitant]
  5. TAXOTERE [Concomitant]
     Dosage: 48 MG
  6. DECADRON [Concomitant]
     Dosage: 4 MG, UNK
  7. ZYPREXA [Concomitant]
  8. EFFEXOR XR [Concomitant]
     Dosage: 75 MG, UNK

REACTIONS (11)
  - ALVEOLOPLASTY [None]
  - BONE DISORDER [None]
  - BONE OPERATION [None]
  - EXCESSIVE GRANULATION TISSUE [None]
  - FISTULA [None]
  - ORAL INFECTION [None]
  - ORAL SURGERY [None]
  - OSTEONECROSIS [None]
  - PURULENT DISCHARGE [None]
  - TOOTH EXTRACTION [None]
  - WOUND DEBRIDEMENT [None]
